FAERS Safety Report 8321179-5 (Version None)
Quarter: 2012Q2

REPORT INFORMATION
  Report Type: 
  Country: None (occurrence: None)
  Receive Date: 20120426
  Receipt Date: 20120416
  Transmission Date: 20120825
  Serious: Yes (Hospitalization)
  Sender: FDA-Public Use
  Company Number: 1232468

PATIENT
  Age: 71 Year
  Sex: Male
  Weight: 36.1517 kg

DRUGS (9)
  1. NEULASTA [Suspect]
     Indication: NON-HODGKIN'S LYMPHOMA
     Dosage: 6 MG MILLIGRAM(S), SUBCUTANEOUS
     Route: 058
     Dates: start: 20090325, end: 20090402
  2. CYCLOPHOSPHAMIDE [Suspect]
     Indication: NON-HODGKIN'S LYMPHOMA
     Dosage: 1410 MG MILLIGRAM(S), INTRAVENOUS
     Route: 042
     Dates: start: 20090325, end: 20090325
  3. METOCLOPRAMIDE [Concomitant]
  4. GEMCITABINE HYDROCHLORIDE [Suspect]
     Indication: NON-HODGKIN'S LYMPHOMA
     Dosage: 1880 MG MILLIGRAM(S), INTRAVENOUS
     Route: 042
     Dates: start: 20090325, end: 20090401
  5. TRAMADOL HCL [Concomitant]
  6. PREDNISONE TAB [Suspect]
     Indication: NON-HODGKIN'S LYMPHOMA
     Dosage: 100 MG MILLIGRAM(S), ORAL
     Route: 048
     Dates: start: 20090325, end: 20090329
  7. (RITUXIMAB) [Suspect]
     Indication: NON-HODGKIN'S LYMPHOMA
     Dosage: 705 MG MILLIGRAM(S), INTRAVENOUS
     Route: 042
     Dates: start: 20090325, end: 20090325
  8. VINCRISTINE SULFATE [Suspect]
     Indication: NON-HODGKIN'S LYMPHOMA
     Dosage: 2 MG MILLIGRAM(S), INTRAVENOUS
     Route: 042
     Dates: start: 20090325, end: 20090325
  9. COTRIM [Concomitant]

REACTIONS (14)
  - BLOOD UREA INCREASED [None]
  - BLOOD CREATININE INCREASED [None]
  - MYOCARDIAL INFARCTION [None]
  - SYSTOLIC DYSFUNCTION [None]
  - ELECTROCARDIOGRAM ST SEGMENT DEPRESSION [None]
  - VENTRICULAR HYPOKINESIA [None]
  - THROMBOCYTOPENIA [None]
  - ARTERIOSCLEROSIS CORONARY ARTERY [None]
  - SEPSIS [None]
  - ANAEMIA [None]
  - DIASTOLIC DYSFUNCTION [None]
  - WHITE BLOOD CELL COUNT DECREASED [None]
  - CORONARY ARTERY OCCLUSION [None]
  - INFECTION [None]
